FAERS Safety Report 11970317 (Version 1)
Quarter: 2016Q1

REPORT INFORMATION
  Report Type: Spontaneous
  Country: US (occurrence: None)
  Receive Date: 20160127
  Receipt Date: 20160127
  Transmission Date: 20160526
  Serious: No
  Sender: FDA-Public Use
  Company Number: None

PATIENT
  Age: 80 Year
  Sex: Female

DRUGS (1)
  1. AFINITOR [Suspect]
     Active Substance: EVEROLIMUS
     Dates: start: 201511

REACTIONS (3)
  - Pulmonary function test decreased [None]
  - Stomatitis [None]
  - Rash [None]

NARRATIVE: CASE EVENT DATE: 20151201
